FAERS Safety Report 13076923 (Version 2)
Quarter: 2017Q1

REPORT INFORMATION
  Report Type: Spontaneous
  Country: IT (occurrence: IT)
  Receive Date: 20161230
  Receipt Date: 20170105
  Transmission Date: 20170428
  Serious: Yes (Life-Threatening)
  Sender: FDA-Public Use
  Company Number: IT-PFIZER INC-2016602187

PATIENT
  Age: 77 Year
  Sex: Male

DRUGS (2)
  1. CYTARABINE. [Suspect]
     Active Substance: CYTARABINE
     Indication: ACUTE MYELOID LEUKAEMIA
     Dosage: 20 MG, CYCLIC (2X/DAY)
     Route: 058
  2. TRETINOIN. [Suspect]
     Active Substance: TRETINOIN
     Indication: ACUTE MYELOID LEUKAEMIA
     Dosage: 45 MG/M2, DAILY
     Route: 048

REACTIONS (7)
  - Pneumonia [Unknown]
  - Haematuria [Unknown]
  - Pancytopenia [Unknown]
  - Bladder injury [Unknown]
  - Sinusitis [Unknown]
  - Disease recurrence [Unknown]
  - Product use issue [Unknown]
